FAERS Safety Report 9491593 (Version 1)
Quarter: 2013Q1

REPORT INFORMATION
  Report Type: Not Available
  Country: US (occurrence: US)
  Receive Date: 20121219
  Receipt Date: 20121219
  Transmission Date: 20140127
  Serious: No
  Sender: FDA-Public Use
  Company Number: US-LUNDBECK-DKLU1083351

PATIENT
  Sex: Female

DRUGS (4)
  1. ONFI [Suspect]
     Indication: CONVULSION
     Route: 048
     Dates: start: 20120701
  2. ONFI [Suspect]
     Route: 048
     Dates: start: 20120721
  3. TRANXENE [Suspect]
     Indication: PRODUCT USED FOR UNKNOWN INDICATION
  4. LAMICTAL [Concomitant]
     Indication: PRODUCT USED FOR UNKNOWN INDICATION

REACTIONS (4)
  - Flatulence [Unknown]
  - Headache [Unknown]
  - Abdominal distension [Unknown]
  - Fatigue [Unknown]
